FAERS Safety Report 25937401 (Version 1)
Quarter: 2025Q4

REPORT INFORMATION
  Report Type: Report from Study
  Country: US (occurrence: US)
  Receive Date: 20251018
  Receipt Date: 20251018
  Transmission Date: 20260118
  Serious: Yes (Other)
  Sender: ABBVIE
  Company Number: US-ABBVIE-5939488

PATIENT
  Age: 61 Year
  Sex: Female

DRUGS (2)
  1. IMBRUVICA [Suspect]
     Active Substance: IBRUTINIB
     Indication: Product used for unknown indication
     Route: 048
     Dates: start: 202403
  2. IMBRUVICA [Suspect]
     Active Substance: IBRUTINIB
     Indication: Product used for unknown indication
     Route: 048
     Dates: start: 2021

REACTIONS (11)
  - Blood glucose [Unknown]
  - Fatigue [Unknown]
  - Retinal haemorrhage [Unknown]
  - Alopecia [Unknown]
  - Blood glucose abnormal [Unknown]
  - Uveitis [Unknown]
  - Glaucoma [Unknown]
  - Cataract [Unknown]
  - Blindness [Unknown]
  - Nerve degeneration [Unknown]
  - Plantar fasciitis [Unknown]

NARRATIVE: CASE EVENT DATE: 20240601
